FAERS Safety Report 12243937 (Version 3)
Quarter: 2016Q2

REPORT INFORMATION
  Report Type: Report from Study
  Country: BE (occurrence: BE)
  Receive Date: 20160406
  Receipt Date: 20160505
  Transmission Date: 20160815
  Serious: Yes (Hospitalization)
  Sender: FDA-Public Use
  Company Number: BE-ABBVIE-16P-013-1597671-00

PATIENT
  Sex: Female

DRUGS (8)
  1. PROLOPA [Concomitant]
     Active Substance: BENSERAZIDE\LEVODOPA
     Indication: PARKINSON^S DISEASE
     Dosage: FORM STRENGTH: 200MG/50MG
     Route: 048
  2. DUODOPA [Suspect]
     Active Substance: CARBIDOPA\LEVODOPA
     Indication: PARKINSON^S DISEASE
     Dosage: AM=5ML; CD=3ML/H FOR 16HRS; ED=1ML
     Route: 050
     Dates: start: 20100329, end: 20100419
  3. DUODOPA [Suspect]
     Active Substance: CARBIDOPA\LEVODOPA
     Dosage: DOSES CONTINUOUSLY MONITORED AND ADAPTED.
     Route: 050
     Dates: start: 20100419, end: 20160331
  4. DUODOPA [Suspect]
     Active Substance: CARBIDOPA\LEVODOPA
     Dosage: AM=0ML; CD=1.3ML/H FOR 16HRS; ED=1ML
     Route: 050
     Dates: start: 20160426, end: 20160429
  5. PROLOPA [Concomitant]
     Active Substance: BENSERAZIDE\LEVODOPA
     Dosage: FORM STRENGTH: 200MG/50MG;?UNIT DOSE=0.5 UNIT
  6. DUODOPA [Suspect]
     Active Substance: CARBIDOPA\LEVODOPA
     Dosage: AM=0ML; CD=1.6ML/H FOR 16HRS; ED=1ML
     Route: 050
     Dates: start: 20160331, end: 20160426
  7. REMERGON [Concomitant]
     Active Substance: MIRTAZAPINE
     Indication: PRODUCT USED FOR UNKNOWN INDICATION
     Dates: start: 2011
  8. DUODOPA [Suspect]
     Active Substance: CARBIDOPA\LEVODOPA
     Dosage: AM=0ML; CD=1.1ML/H FOR 16HRS; ED=1ML
     Route: 050
     Dates: start: 20160429

REACTIONS (3)
  - Freezing phenomenon [Unknown]
  - Muscle rigidity [Recovering/Resolving]
  - General physical health deterioration [Unknown]
